FAERS Safety Report 23703679 (Version 1)
Quarter: 2024Q2

REPORT INFORMATION
  Report Type: Spontaneous
  Country: US (occurrence: US)
  Receive Date: 20240403
  Receipt Date: 20240403
  Transmission Date: 20240716
  Serious: No
  Sender: FDA-Public Use
  Company Number: US-PFIZER INC-202400074901

PATIENT
  Sex: Female

DRUGS (2)
  1. ALDACTONE [Suspect]
     Active Substance: SPIRONOLACTONE
     Indication: Cardiac disorder
     Dosage: UNK, DAILY (TO TAKE 1 TABLET EACH DAY FOR 10 DAYS)
     Dates: end: 202402
  2. ALDACTONE [Suspect]
     Active Substance: SPIRONOLACTONE
     Indication: Atrial fibrillation

REACTIONS (8)
  - Pruritus [Unknown]
  - Alopecia [Unknown]
  - Skin exfoliation [Recovering/Resolving]
  - Eye irritation [Unknown]
  - Ocular hyperaemia [Unknown]
  - Blister [Recovering/Resolving]
  - Off label use [Unknown]
  - Drug effective for unapproved indication [Unknown]
